FAERS Safety Report 7973767-3 (Version None)
Quarter: 2011Q4

REPORT INFORMATION
  Report Type: 
  Country: None (occurrence: None)
  Receive Date: 20111213
  Receipt Date: 20111128
  Transmission Date: 20120403
  Serious: Yes (Other)
  Sender: FDA-Public Use
  Company Number: PHHY2011DE107686

PATIENT

DRUGS (3)
  1. CLOZAPINE [Suspect]
     Dosage: 275 MG, UNK
     Route: 064
  2. CLOZAPINE [Suspect]
     Route: 064
  3. HALDOL [Concomitant]
     Dosage: 15 MG, DAILY

REACTIONS (2)
  - GROWTH RETARDATION [None]
  - FOETAL EXPOSURE DURING PREGNANCY [None]
